APPROVED DRUG PRODUCT: CYCLOPHOSPHAMIDE
Active Ingredient: CYCLOPHOSPHAMIDE
Strength: 500MG/VIAL
Dosage Form/Route: INJECTABLE;INJECTION
Application: A214529 | Product #001 | TE Code: AP
Applicant: SAGENT PHARMACEUTICALS INC
Approved: Jul 17, 2023 | RLD: No | RS: No | Type: RX